FAERS Safety Report 4597962-9 (Version None)
Quarter: 2005Q1

REPORT INFORMATION
  Report Type: 
  Country: None (occurrence: None)
  Receive Date: 20050301
  Receipt Date: 20050222
  Transmission Date: 20050727
  Serious: Yes (Other)
  Sender: FDA-Public Use
  Company Number: 004198

PATIENT
  Age: 26 Year
  Sex: Female
  Weight: 65.8 kg

DRUGS (1)
  1. SEASONALE (LEVONORGESTREL ETHINYL ESTRADIOL) TABLET [Suspect]
     Indication: ORAL CONTRACEPTION
     Dosage: 1.00 TABLET, QD, ORAL
     Route: 048
     Dates: start: 20040201, end: 20050214

REACTIONS (5)
  - ABORTION SPONTANEOUS [None]
  - DRUG EXPOSURE DURING PREGNANCY [None]
  - METRORRHAGIA [None]
  - PHARMACEUTICAL PRODUCT COMPLAINT [None]
  - UNINTENDED PREGNANCY [None]
